FAERS Safety Report 5336808-8 (Version None)
Quarter: 2007Q2

REPORT INFORMATION
  Report Type: 
  Country: None (occurrence: None)
  Receive Date: 20070529
  Receipt Date: 20070517
  Transmission Date: 20071010
  Serious: Yes (Other)
  Sender: FDA-Public Use
  Company Number: PHBS2007JP05855

PATIENT
  Age: 51 Year
  Sex: Female
  Weight: 62 kg

DRUGS (4)
  1. ALLEGRA [Concomitant]
     Indication: RHINITIS
     Dosage: 120 MG, UNK
     Route: 048
  2. ASPIRIN [Concomitant]
     Indication: THROMBOSIS
     Dosage: 100 MG, UNK
     Route: 048
     Dates: start: 20070317, end: 20070328
  3. FERROMIA [Concomitant]
     Indication: ANAEMIA
     Dosage: 150 MG, UNK
     Route: 048
     Dates: end: 20070328
  4. VOLTAREN [Suspect]
     Indication: OSTEOARTHRITIS
     Dosage: 25 MG/DAY
     Route: 054
     Dates: start: 20070318, end: 20070321

REACTIONS (13)
  - ALANINE AMINOTRANSFERASE INCREASED [None]
  - ASPARTATE AMINOTRANSFERASE INCREASED [None]
  - BLOOD ALKALINE PHOSPHATASE INCREASED [None]
  - BLOOD CREATINE PHOSPHOKINASE INCREASED [None]
  - BLOOD LACTATE DEHYDROGENASE INCREASED [None]
  - C-REACTIVE PROTEIN INCREASED [None]
  - GAMMA-GLUTAMYLTRANSFERASE INCREASED [None]
  - HAEMOGLOBIN DECREASED [None]
  - LYMPHOCYTE STIMULATION TEST POSITIVE [None]
  - PALLOR [None]
  - PALPITATIONS [None]
  - PARALYSIS [None]
  - TREMOR [None]
